FAERS Safety Report 9313609 (Version 3)
Quarter: 2013Q4

REPORT INFORMATION
  Report Type: Spontaneous
  Country: BR (occurrence: BR)
  Receive Date: 20130528
  Receipt Date: 20131202
  Transmission Date: 20140711
  Serious: Yes (Hospitalization, Other)
  Sender: FDA-Public Use
  Company Number: BR-B.I. PHARMACEUTICALS,INC./RIDGEFIELD-2013-BR-00604BR

PATIENT
  Sex: Female
  Weight: 74 kg

DRUGS (4)
  1. SPIRIVA RESPIMAT [Suspect]
     Indication: EMPHYSEMA
     Dosage: 5 MCG
     Route: 055
     Dates: start: 2008, end: 201211
  2. SPIRIVA RESPIMAT [Suspect]
     Dosage: 5 MCG
     Route: 055
     Dates: start: 201309
  3. SERETIDE [Concomitant]
     Indication: EMPHYSEMA
     Dates: start: 2008
  4. AEROLIN [Concomitant]
     Indication: EMPHYSEMA

REACTIONS (4)
  - Lung neoplasm malignant [Recovered/Resolved]
  - Lung carcinoma cell type unspecified recurrent [Recovered/Resolved]
  - Dyspnoea [Recovered/Resolved]
  - Malaise [Recovered/Resolved]
